FAERS Safety Report 5590118-2 (Version None)
Quarter: 2008Q1

REPORT INFORMATION
  Report Type: 
  Country: None (occurrence: None)
  Receive Date: 20080114
  Receipt Date: 20070604
  Transmission Date: 20080703
  Serious: No
  Sender: FDA-Public Use
  Company Number: US-ABBOTT-07P-163-0366507-00

PATIENT
  Age: 11 Month
  Sex: Female

DRUGS (2)
  1. OMNICEF [Suspect]
     Indication: OTITIS MEDIA
     Route: 048
     Dates: start: 20070219, end: 20070223
  2. OMNICEF [Suspect]
     Indication: SINUSITIS

REACTIONS (3)
  - CLOSTRIDIAL INFECTION [None]
  - COLITIS [None]
  - GASTROENTERITIS ROTAVIRUS [None]
